FAERS Safety Report 9300186 (Version 1)
Quarter: 2013Q2

REPORT INFORMATION
  Report Type: Spontaneous
  Country: KW (occurrence: KW)
  Receive Date: 20130521
  Receipt Date: 20130521
  Transmission Date: 20140414
  Serious: Yes (Hospitalization, Other)
  Sender: FDA-Public Use
  Company Number: PHHY2013KW050290

PATIENT
  Age: 33 Year
  Sex: Female
  Weight: 66 kg

DRUGS (7)
  1. ACLASTA [Suspect]
     Indication: OSTEOPOROSIS
     Dosage: 5 MG, ONCE A YEAR
     Route: 042
     Dates: start: 20130407
  2. PREDNISOLONE [Concomitant]
     Dosage: UNK UKN, UNK
  3. MYFORTIC [Concomitant]
     Dosage: UNK UKN, UNK
  4. PROGRAFT [Concomitant]
     Dosage: UNK UKN, UNK
  5. ALDOMET [Concomitant]
     Dosage: UNK UKN, UNK
  6. DIOVAN [Concomitant]
     Dosage: UNK UKN, UNK
  7. LIPITOR [Concomitant]
     Dosage: UNK UKN, UNK

REACTIONS (3)
  - Complications of transplanted kidney [Recovered/Resolved]
  - Kidney fibrosis [Unknown]
  - Renal tubular atrophy [Unknown]
